FAERS Safety Report 6685109-4 (Version None)
Quarter: 2010Q2

REPORT INFORMATION
  Report Type: 
  Country: None (occurrence: None)
  Receive Date: 20100416
  Receipt Date: 20090507
  Transmission Date: 20101027
  Serious: No
  Sender: FDA-Public Use
  Company Number: US-BRISTOL-MYERS SQUIBB COMPANY-14618250

PATIENT
  Age: 69 Year
  Sex: Female

DRUGS (2)
  1. CARBOPLATIN [Suspect]
     Indication: OVARIAN CANCER
     Dosage: 700 ML TOTAL VOLUME FOR BOTH DRUGS.
     Dates: start: 20090423, end: 20090423
  2. TAXOTERE [Suspect]
     Indication: OVARIAN CANCER
     Dosage: 700 ML TOTAL VOLUME FOR BOTH DRUGS;SOLN FOR INF.
     Route: 042
     Dates: start: 20090423, end: 20090423

REACTIONS (2)
  - INFUSION SITE EXTRAVASATION [None]
  - INFUSION SITE SWELLING [None]
